FAERS Safety Report 5879560-X (Version None)
Quarter: 2008Q3

REPORT INFORMATION
  Report Type: 
  Country: None (occurrence: None)
  Receive Date: 20080912
  Receipt Date: 20080909
  Transmission Date: 20090109
  Serious: Yes (Hospitalization)
  Sender: FDA-Public Use
  Company Number: US-JNJFOC-20080900230

PATIENT
  Sex: Male
  Weight: 67.13 kg

DRUGS (10)
  1. TMC114 [Suspect]
     Route: 048
  2. TMC114 [Suspect]
     Indication: HIV INFECTION
     Route: 048
  3. NORVIR [Suspect]
     Indication: HIV INFECTION
     Route: 048
  4. TRUVADA [Concomitant]
     Indication: HIV INFECTION
  5. ZYPREXA [Concomitant]
     Indication: SCHIZOPHRENIA, PARANOID TYPE
  6. PROZAC [Concomitant]
     Indication: SCHIZOPHRENIA, PARANOID TYPE
  7. PROVENTIL [Concomitant]
     Indication: ASTHMA
     Dosage: EVERY 4 TO 6 HOURS
  8. ACTOS [Concomitant]
     Indication: DIABETES MELLITUS
  9. MEPRON [Concomitant]
     Indication: ANTIFUNGAL PROPHYLAXIS
  10. IBUPROFEN [Concomitant]
     Indication: ARTHRALGIA

REACTIONS (1)
  - PNEUMONIA [None]
